FAERS Safety Report 9472347 (Version 1)
Quarter: 2013Q3

REPORT INFORMATION
  Report Type: Spontaneous
  Country: FR (occurrence: FR)
  Receive Date: 20130823
  Receipt Date: 20130823
  Transmission Date: 20140515
  Serious: Yes (Other)
  Sender: FDA-Public Use
  Company Number: FR-JNJFOC-20130809118

PATIENT
  Age: 59 Year
  Sex: Female

DRUGS (11)
  1. REMICADE [Suspect]
     Indication: PRODUCT USED FOR UNKNOWN INDICATION
     Route: 042
     Dates: start: 201006, end: 201108
  2. REMICADE [Suspect]
     Indication: PRODUCT USED FOR UNKNOWN INDICATION
     Route: 042
     Dates: start: 201202, end: 20130619
  3. ENBREL [Suspect]
     Indication: PRODUCT USED FOR UNKNOWN INDICATION
     Route: 065
     Dates: start: 200812, end: 201005
  4. AERIUS [Concomitant]
     Indication: PREMEDICATION
     Route: 048
     Dates: start: 201006, end: 20130619
  5. PARACETAMOL [Concomitant]
     Route: 065
  6. INEGY [Concomitant]
     Dosage: 10/20 MG
     Route: 065
     Dates: start: 201007
  7. APROVEL [Concomitant]
     Route: 048
     Dates: start: 201007
  8. ZALDIAR [Concomitant]
     Dosage: 37.5 TID 6 IN QD
     Route: 048
     Dates: start: 2011
  9. METFORMIN [Concomitant]
     Route: 048
     Dates: start: 2010
  10. LODOZ [Concomitant]
     Route: 048
     Dates: start: 201007
  11. MOPRAL [Concomitant]
     Route: 048
     Dates: start: 2011

REACTIONS (2)
  - Superficial spreading melanoma stage unspecified [Not Recovered/Not Resolved]
  - Actinomycosis [Unknown]
